FAERS Safety Report 12687464 (Version 1)
Quarter: 2016Q3

REPORT INFORMATION
  Report Type: Spontaneous
  Country: US (occurrence: US)
  Receive Date: 20160825
  Receipt Date: 20160825
  Transmission Date: 20161109
  Serious: No
  Sender: FDA-Public Use
  Company Number: US-GALDERMA-US16001164

PATIENT
  Age: 41 Year
  Sex: Male

DRUGS (3)
  1. DOVE BAR SOAP [Concomitant]
     Indication: THERAPEUTIC SKIN CARE TOPICAL
     Route: 061
  2. CLOBEX [Suspect]
     Active Substance: CLOBETASOL PROPIONATE
     Indication: VITILIGO
     Route: 061
     Dates: start: 201601
  3. CLOBEX [Suspect]
     Active Substance: CLOBETASOL PROPIONATE
     Route: 061
     Dates: start: 20160221

REACTIONS (4)
  - Product use issue [Not Recovered/Not Resolved]
  - Skin discomfort [Not Recovered/Not Resolved]
  - Feeling hot [Not Recovered/Not Resolved]
  - Erythema [Recovered/Resolved]

NARRATIVE: CASE EVENT DATE: 201601
